FAERS Safety Report 9590069 (Version 1)
Quarter: 2013Q4

REPORT INFORMATION
  Report Type: Spontaneous
  Country: US (occurrence: US)
  Receive Date: 20131003
  Receipt Date: 20131003
  Transmission Date: 20140711
  Serious: No
  Sender: FDA-Public Use
  Company Number: US-AMGEN-USASP2012074895

PATIENT
  Sex: Female

DRUGS (2)
  1. ENBREL [Suspect]
     Indication: RHEUMATOID ARTHRITIS
     Dosage: 50 MG, QWK
     Dates: start: 2001, end: 20121015
  2. HUMIRA [Concomitant]
     Dosage: UNK MG INJECTION, EVERY 2 WEEKS
     Dates: start: 20121027

REACTIONS (3)
  - Arthralgia [Recovered/Resolved]
  - Arthritis [Recovered/Resolved]
  - Therapeutic response decreased [Recovered/Resolved]
